FAERS Safety Report 23149195 (Version 10)
Quarter: 2025Q1

REPORT INFORMATION
  Report Type: Report from Study
  Country: CL (occurrence: CL)
  Receive Date: 20231106
  Receipt Date: 20250326
  Transmission Date: 20250409
  Serious: Yes (Other)
  Sender: NOVARTIS
  Company Number: CL-002147023-NVSC2023CL214882

PATIENT
  Age: 55 Year
  Sex: Female

DRUGS (11)
  1. KISQALI [Suspect]
     Active Substance: RIBOCICLIB
     Indication: Breast cancer
     Dosage: 3 DOSAGE FORM, QD (600 MG, QD, 3 X 200MG) FOR 21 DAYS (PREFERABLY IN THE MORNING)
     Route: 048
     Dates: start: 20230810
  2. KISQALI [Suspect]
     Active Substance: RIBOCICLIB
     Route: 048
     Dates: start: 20240520
  3. KISQALI [Suspect]
     Active Substance: RIBOCICLIB
     Dosage: 600 MG, QD
     Route: 048
  4. KISQALI [Suspect]
     Active Substance: RIBOCICLIB
     Route: 065
  5. KISQALI [Suspect]
     Active Substance: RIBOCICLIB
     Dosage: 400 MG, QD (2 X 200MG) NEW CYCLE
     Route: 048
  6. FULVESTRANT [Suspect]
     Active Substance: FULVESTRANT
     Indication: Product used for unknown indication
     Dosage: UNK, QMO (RECEIVED 5 CYCLES OF TREATMENT)
     Route: 030
     Dates: start: 20230728
  7. FULVESTRANT [Suspect]
     Active Substance: FULVESTRANT
     Route: 030
  8. LETROZOLE [Suspect]
     Active Substance: LETROZOLE
     Indication: Product used for unknown indication
     Route: 065
  9. CALCIUM CARBONATE\CHOLECALCIFEROL [Concomitant]
     Active Substance: CALCIUM CARBONATE\CHOLECALCIFEROL
     Indication: Product used for unknown indication
     Dosage: 1 DOSAGE FORM, Q24H
     Route: 048
  10. CALCIUM [Concomitant]
     Active Substance: CALCIUM
     Indication: Product used for unknown indication
     Route: 065
  11. Alopek [Concomitant]
     Indication: Product used for unknown indication
     Dosage: UNK, Q12H (SPRAY, 1 APPLICATION (5%))
     Route: 065

REACTIONS (30)
  - Hepatic lesion [Unknown]
  - Immunodeficiency [Unknown]
  - Breast cancer recurrent [Not Recovered/Not Resolved]
  - Metastases to breast [Unknown]
  - Malignant neoplasm progression [Unknown]
  - Alopecia [Not Recovered/Not Resolved]
  - Abdominal pain [Recovered/Resolved]
  - Mean cell volume abnormal [Unknown]
  - Arteriosclerosis [Unknown]
  - Costal cartilage fracture [Unknown]
  - Mucosal inflammation [Recovering/Resolving]
  - Haemoglobin abnormal [Unknown]
  - Neutrophil count abnormal [Unknown]
  - White blood cell count abnormal [Unknown]
  - Blood lactate dehydrogenase abnormal [Unknown]
  - International normalised ratio abnormal [Unknown]
  - Nasopharyngitis [Unknown]
  - Nail disorder [Unknown]
  - Platelet count abnormal [Unknown]
  - Blood albumin abnormal [Unknown]
  - Mean cell haemoglobin concentration abnormal [Unknown]
  - Blood bilirubin abnormal [Unknown]
  - Blood creatinine abnormal [Unknown]
  - Aspartate aminotransferase abnormal [Unknown]
  - Blood glucose abnormal [Unknown]
  - Alanine aminotransferase abnormal [Unknown]
  - Blood alkaline phosphatase abnormal [Unknown]
  - Gamma-glutamyltransferase abnormal [Unknown]
  - Dysphonia [Unknown]
  - Red blood cell count decreased [Unknown]

NARRATIVE: CASE EVENT DATE: 20230823
